FAERS Safety Report 15431484 (Version 2)
Quarter: 2018Q4

REPORT INFORMATION
  Report Type: Spontaneous
  Country: US (occurrence: US)
  Receive Date: 20180926
  Receipt Date: 20181106
  Transmission Date: 20190204
  Serious: Yes (Death, Other)
  Sender: FDA-Public Use
  Company Number: US-PFIZER INC-2018367368

PATIENT
  Age: 76 Year
  Sex: Male

DRUGS (1)
  1. GENOTROPIN MQ [Suspect]
     Active Substance: SOMATROPIN
     Dosage: 1 MG, DAILY (ALWAYS TAKES IT AT NIGHT)
     Route: 058
     Dates: start: 20100118

REACTIONS (4)
  - Oedema [Unknown]
  - Product dose omission [Unknown]
  - Renal failure [Fatal]
  - Intestinal obstruction [Fatal]
